FAERS Safety Report 6635726-2 (Version None)
Quarter: 2010Q1

REPORT INFORMATION
  Report Type: 
  Country: None (occurrence: None)
  Receive Date: 20100311
  Receipt Date: 20100311
  Transmission Date: 20100710
  Serious: Yes (Hospitalization)
  Sender: FDA-Public Use
  Company Number: None

PATIENT
  Age: 42 Year
  Sex: Female
  Weight: 57 kg

DRUGS (15)
  1. VANCOMYCIN [Suspect]
     Indication: PNEUMONIA
     Dosage: 1250MG Q12H IV
     Route: 042
     Dates: start: 20100119, end: 20100209
  2. VANCOMYCIN [Suspect]
  3. FLONASE [Concomitant]
  4. FOLIC ACID [Concomitant]
  5. GABAPENTIN [Concomitant]
  6. METHOTREXATE [Concomitant]
  7. MULTI-VITAMIN [Concomitant]
  8. OXAPROZIN [Concomitant]
  9. PREDNISONE [Concomitant]
  10. TAMOXIFEN CITRATE [Concomitant]
  11. VALACYCLOVIR [Concomitant]
  12. RECLAST [Concomitant]
  13. PSEUDOEPHED [Concomitant]
  14. FEXOFENADINE [Concomitant]
  15. TRAMADOL HCL [Concomitant]

REACTIONS (3)
  - DIALYSIS [None]
  - RASH [None]
  - RENAL FAILURE ACUTE [None]
